FAERS Safety Report 4473057-X (Version None)
Quarter: 2004Q4

REPORT INFORMATION
  Report Type: 
  Country: None (occurrence: None)
  Receive Date: 20041007
  Receipt Date: 20041007
  Transmission Date: 20050328
  Serious: No
  Sender: FDA-Public Use
  Company Number: None

PATIENT
  Age: 54 Year

DRUGS (1)
  1. CELEBREX [Suspect]
     Indication: ROTATOR CUFF SYNDROME
     Dosage: 1 Q DAY
     Dates: start: 20040531

REACTIONS (4)
  - ANXIETY [None]
  - BLOOD PRESSURE INCREASED [None]
  - PALPITATIONS [None]
  - SERUM SEROTONIN INCREASED [None]
